FAERS Safety Report 4922525-2 (Version None)
Quarter: 2006Q1

REPORT INFORMATION
  Report Type: 
  Country: None (occurrence: None)
  Receive Date: 20060224
  Receipt Date: 20060213
  Transmission Date: 20060701
  Serious: Yes (Disabling)
  Sender: FDA-Public Use
  Company Number: AU-ROCHE-436127

PATIENT
  Age: 16 Year
  Sex: Female

DRUGS (1)
  1. ROACCUTANE [Suspect]
     Indication: DRUG USE FOR UNKNOWN INDICATION
     Route: 048
     Dates: start: 19980301, end: 19980901

REACTIONS (8)
  - AGGRESSION [None]
  - DEPRESSION [None]
  - MIGRAINE [None]
  - MOOD SWINGS [None]
  - MYOPIA [None]
  - PARANOIA [None]
  - SUICIDAL IDEATION [None]
  - WEIGHT DECREASED [None]
